FAERS Safety Report 5150177-8 (Version None)
Quarter: 2006Q4

REPORT INFORMATION
  Report Type: 
  Country: None (occurrence: None)
  Receive Date: 20061108
  Receipt Date: 20061024
  Transmission Date: 20070319
  Serious: Yes (Other)
  Sender: FDA-Public Use
  Company Number: US-2006-006924

PATIENT
  Age: 61 Year
  Sex: Female

DRUGS (3)
  1. BETASERON [Suspect]
     Indication: MULTIPLE SCLEROSIS
     Dosage: 8 MIU, EVERY 2D, SUBCUTANEOUS
     Route: 058
     Dates: start: 20000203
  2. SEROQUEL [Suspect]
     Dates: start: 20060201
  3. KLONOPIN [Concomitant]

REACTIONS (4)
  - AMNESIA [None]
  - HALLUCINATION [None]
  - HYPERVENTILATION [None]
  - WEIGHT DECREASED [None]
